FAERS Safety Report 19257955 (Version 2)
Quarter: 2021Q2

REPORT INFORMATION
  Report Type: Spontaneous
  Country: CA (occurrence: CA)
  Receive Date: 20210514
  Receipt Date: 20210622
  Transmission Date: 20210717
  Serious: Yes (Disabling, Other)
  Sender: FDA-Public Use
  Company Number: CA-LEO PHARMA-336387

PATIENT
  Age: 17 Year
  Sex: Male

DRUGS (10)
  1. BUDESONIDE/FORMOTEROL FUMERATE [Suspect]
     Active Substance: BUDESONIDE\FORMOTEROL FUMARATE
     Indication: PRODUCT USED FOR UNKNOWN INDICATION
     Dosage: DOSAGE : 2.0 INHALATION
  2. IPRATROPIUM/SALBUTAMOL [Suspect]
     Active Substance: ALBUTEROL\IPRATROPIUM BROMIDE
     Indication: PRODUCT USED FOR UNKNOWN INDICATION
     Dosage: DOSAGE : UNKNOWN
  3. TIOTROPIUM [Suspect]
     Active Substance: TIOTROPIUM
     Indication: PRODUCT USED FOR UNKNOWN INDICATION
  4. DUPILUMAB [Suspect]
     Active Substance: DUPILUMAB
     Indication: PRODUCT USED FOR UNKNOWN INDICATION
     Route: 058
  5. HYDROXYZINE [Suspect]
     Active Substance: HYDROXYZINE HYDROCHLORIDE
     Indication: PRODUCT USED FOR UNKNOWN INDICATION
     Dosage: DOSAGE : 25.0 MG, 2 EVERY 1 DAY, ORAL
     Route: 048
  6. TIOTROPIUM BROMIDE [Suspect]
     Active Substance: TIOTROPIUM BROMIDE
     Indication: PRODUCT USED FOR UNKNOWN INDICATION
     Dosage: DOSAGE : 2.0  1 EVERY 1 DAY INHALATION
  7. SALBUTAMOL SULFATE [Suspect]
     Active Substance: ALBUTEROL SULFATE
     Indication: PRODUCT USED FOR UNKNOWN INDICATION
     Dosage: DOSAGE : 2.0 INHALATION
  8. NUCALA [Suspect]
     Active Substance: MEPOLIZUMAB
     Indication: PRODUCT USED FOR UNKNOWN INDICATION
     Route: 042
  9. DOVOBET [Suspect]
     Active Substance: BETAMETHASONE\CALCIPOTRIENE
     Indication: PRODUCT USED FOR UNKNOWN INDICATION
     Route: 065
  10. SINGULAIR [Suspect]
     Active Substance: MONTELUKAST SODIUM
     Indication: PRODUCT USED FOR UNKNOWN INDICATION
     Dosage: DOSAGE : NOT SPECIFIED

REACTIONS (20)
  - Hallucination [Unknown]
  - Anxiety [Unknown]
  - Conjunctivitis viral [Unknown]
  - Nasopharyngitis [Unknown]
  - Productive cough [Unknown]
  - Chest discomfort [Unknown]
  - Dermatitis atopic [Unknown]
  - Dyspnoea [Unknown]
  - Seasonal allergy [Unknown]
  - Blood immunoglobulin E increased [Unknown]
  - Infection [Unknown]
  - Allergy to animal [Unknown]
  - Asthma [Unknown]
  - Wheezing [Unknown]
  - Therapeutic product effect incomplete [Unknown]
  - Eosinophil count increased [Unknown]
  - Rhinitis allergic [Unknown]
  - Loss of personal independence in daily activities [Unknown]
  - Raynaud^s phenomenon [Unknown]
  - Agitation [Unknown]
